FAERS Safety Report 6330825-7 (Version None)
Quarter: 2009Q3

REPORT INFORMATION
  Report Type: 
  Country: None (occurrence: None)
  Receive Date: 20090827
  Receipt Date: 20090825
  Transmission Date: 20100115
  Serious: Yes (Death)
  Sender: FDA-Public Use
  Company Number: PHHY2009IN22604

PATIENT
  Age: 60 Year
  Sex: Male

DRUGS (2)
  1. SANDOSTATIN LAR [Suspect]
     Indication: NEUROENDOCRINE TUMOUR
     Dosage: 20 MG, QMO
  2. SANDOSTATIN LAR [Suspect]
     Indication: PROSTATE CANCER

REACTIONS (4)
  - BLADDER DISORDER [None]
  - HAEMATURIA [None]
  - NEOPLASM MALIGNANT [None]
  - RENAL FAILURE ACUTE [None]
